FAERS Safety Report 25119912 (Version 2)
Quarter: 2025Q1

REPORT INFORMATION
  Report Type: Spontaneous
  Country: US (occurrence: US)
  Receive Date: 20250325
  Receipt Date: 20250325
  Transmission Date: 20250409
  Serious: No
  Sender: SANDOZ
  Company Number: US-SANDOZ-SDZ2025US017513

PATIENT
  Age: 28 Year
  Sex: Female

DRUGS (1)
  1. ADALIMUMAB [Suspect]
     Active Substance: ADALIMUMAB
     Indication: Product used for unknown indication
     Dosage: 40 MG : ONE  INJECTION EVERY 14 DAYS
     Route: 058

REACTIONS (2)
  - Product dose omission issue [Unknown]
  - Needle issue [Unknown]

NARRATIVE: CASE EVENT DATE: 20250225
